FAERS Safety Report 8879976 (Version 1)
Quarter: 2012Q4

REPORT INFORMATION
  Report Type: 
  Country: US (occurrence: US)
  Receive Date: 20121031
  Receipt Date: 20121031
  Transmission Date: 20130627
  Serious: Yes (Other)
  Sender: FDA-Public Use
  Company Number: US-ELI_LILLY_AND_COMPANY-US201206007020

PATIENT
  Sex: Female
  Weight: 53.52 kg

DRUGS (5)
  1. FORTEO [Suspect]
     Indication: OSTEOPOROSIS
     Dosage: 20 ug, qd
     Route: 058
     Dates: start: 201004, end: 2010
  2. FORTEO [Suspect]
     Dosage: 20 ug, qd
     Route: 058
  3. FORTEO [Suspect]
     Dosage: 20 ug, qd
     Route: 058
  4. CRESTOR [Concomitant]
     Dosage: 5 mg, qod
  5. SYNTHROID [Concomitant]
     Dosage: 0.88 ug, qd

REACTIONS (4)
  - Squamous cell carcinoma of the oral cavity [Recovering/Resolving]
  - Squamous cell carcinoma of skin [Recovering/Resolving]
  - Muscle spasms [Unknown]
  - Accidental overdose [Recovered/Resolved]
